FAERS Safety Report 7002688-8 (Version None)
Quarter: 2010Q3

REPORT INFORMATION
  Report Type: 
  Country: None (occurrence: None)
  Receive Date: 20100920
  Receipt Date: 20100910
  Transmission Date: 20110219
  Serious: Yes (Death, Hospitalization, Other)
  Sender: FDA-Public Use
  Company Number: US-ELI_LILLY_AND_COMPANY-US201006000812

PATIENT
  Sex: Male

DRUGS (9)
  1. FORTEO [Suspect]
     Indication: OSTEOPOROSIS
     Dosage: UNK, UNK
  2. ATIVAN [Concomitant]
     Dosage: 1 MG, 3/D
  3. DILTIAZEM [Concomitant]
     Dosage: 120 MG, UNK
  4. LEVOTHYROXINE SODIUM [Concomitant]
     Dosage: 112 UG, UNK
  5. PROZAC [Concomitant]
     Dosage: 10 MG, UNK
  6. ARICEPT [Concomitant]
     Dosage: 1 D/F, DAILY (1/D)
  7. VITAMIN D [Concomitant]
     Dosage: 1000 U, DAILY (1/D)
  8. NEXIUM [Concomitant]
     Dosage: 40 MG, UNK
  9. NITROGLYCERIN [Concomitant]
     Dosage: UNK, UNK

REACTIONS (3)
  - DEATH [None]
  - PANCREATIC CARCINOMA [None]
  - WEIGHT DECREASED [None]
